FAERS Safety Report 18041800 (Version 3)
Quarter: 2021Q3

REPORT INFORMATION
  Report Type: Spontaneous
  Country: US (occurrence: US)
  Receive Date: 20200720
  Receipt Date: 20210917
  Transmission Date: 20211014
  Serious: Yes (Death, Hospitalization, Other)
  Sender: FDA-Public Use
  Company Number: US-TEVA-2020-US-1801893

PATIENT
  Age: 77 Year
  Sex: Male
  Weight: 86.2 kg

DRUGS (17)
  1. MATURE MULTIVITAMIN [Concomitant]
     Indication: PROPHYLAXIS
     Dosage: 1 DOSAGE FORMS DAILY;
     Dates: start: 1995, end: 20180808
  2. FISH OIL [Concomitant]
     Active Substance: FISH OIL
  3. CRANBERRY PILLS [Concomitant]
     Indication: RENAL DISORDER PROPHYLAXIS
     Dosage: 1 DOSAGE FORMS DAILY;
     Dates: start: 1995, end: 20180808
  4. VALSARTAN SOLCO [Suspect]
     Active Substance: VALSARTAN
     Indication: HYPERTENSION
     Route: 048
     Dates: start: 20180514, end: 20180730
  5. VALSARTAN W/HYDROCHLOROTHIAZIDE SANDOZ [Suspect]
     Active Substance: HYDROCHLOROTHIAZIDE\VALSARTAN
     Indication: HYPERTENSION
     Dosage: 160/12.5MG
     Route: 048
     Dates: start: 201212, end: 201305
  6. METFORMIN [Concomitant]
     Active Substance: METFORMIN HYDROCHLORIDE
  7. BAYER ASPIRIN [Concomitant]
     Active Substance: ASPIRIN
     Indication: CARDIOVASCULAR EVENT PROPHYLAXIS
     Dosage: 1 DOSAGE FORMS DAILY;
     Route: 048
     Dates: start: 1999, end: 20180808
  8. VITAMIN D [Concomitant]
     Active Substance: VITAMIN D NOS
     Indication: PROPHYLAXIS
     Dosage: 1 DOSAGE FORMS DAILY;
     Dates: start: 1995, end: 20180808
  9. TRADJENTA [Concomitant]
     Active Substance: LINAGLIPTIN
  10. VALSARTAN W/HYDROCHLOROTHIAZIDE TEVA [Suspect]
     Active Substance: HYDROCHLOROTHIAZIDE\VALSARTAN
     Dosage: 160/12.5MG
     Route: 048
     Dates: start: 20140312, end: 20161129
  11. VALSARTAN W/HYDROCHLOROTHIAZIDE TEVA [Suspect]
     Active Substance: HYDROCHLOROTHIAZIDE\VALSARTAN
     Dosage: 160/12.5MG
     Route: 048
     Dates: start: 20161214, end: 20180529
  12. BENICAR [Concomitant]
     Active Substance: OLMESARTAN MEDOXOMIL
  13. DIOVAN HCT [Suspect]
     Active Substance: HYDROCHLOROTHIAZIDE\VALSARTAN
     Indication: HYPERTENSION
     Dosage: 160?12.5MG
     Route: 048
     Dates: start: 200602, end: 201209
  14. CRESTOR [Concomitant]
     Active Substance: ROSUVASTATIN CALCIUM
  15. SAW PALMETTO [Concomitant]
     Active Substance: HERBALS\SAW PALMETTO
     Indication: PROPHYLAXIS
     Dosage: 1 DOSAGE FORMS DAILY;
     Dates: start: 1995, end: 20180808
  16. VALSARTAN W/HYDROCHLOROTHIAZIDE TEVA [Suspect]
     Active Substance: HYDROCHLOROTHIAZIDE\VALSARTAN
     Indication: HYPERTENSION
     Dosage: 160/12.5MG
     Route: 048
     Dates: start: 20130828, end: 20140225
  17. AMLODIPINE [Concomitant]
     Active Substance: AMLODIPINE BESYLATE

REACTIONS (2)
  - Hepatic cancer [Not Recovered/Not Resolved]
  - Cardiopulmonary failure [Fatal]
